FAERS Safety Report 11903090 (Version 2)
Quarter: 2016Q1

REPORT INFORMATION
  Report Type: Spontaneous
  Country: GR (occurrence: GR)
  Receive Date: 20160108
  Receipt Date: 20160112
  Transmission Date: 20160526
  Serious: Yes (Hospitalization, Other)
  Sender: FDA-Public Use
  Company Number: GR-PFIZER INC-2015475130

PATIENT
  Age: 46 Year
  Sex: Male

DRUGS (12)
  1. COLCHICINE. [Suspect]
     Active Substance: COLCHICINE
     Indication: INFLAMMATION
  2. METHYLPREDNISOLONE. [Suspect]
     Active Substance: METHYLPREDNISOLONE
     Indication: DYSPNOEA
     Dosage: 48 MG, UNK
  3. FUROSEMIDE. [Suspect]
     Active Substance: FUROSEMIDE
     Indication: POLYURIA
  4. SPIRONOLACTONE. [Suspect]
     Active Substance: SPIRONOLACTONE
     Indication: POLYURIA
  5. IBUPROFEN. [Suspect]
     Active Substance: IBUPROFEN
     Indication: SHOCK
  6. IBUPROFEN. [Suspect]
     Active Substance: IBUPROFEN
     Indication: DYSPNOEA
     Dosage: 1800 MG, UNK
  7. COLCHICINE. [Suspect]
     Active Substance: COLCHICINE
     Indication: SHOCK
     Dosage: 1 G, UNK
  8. METHYLPREDNISOLONE. [Suspect]
     Active Substance: METHYLPREDNISOLONE
     Indication: SHOCK
  9. SPIRONOLACTONE. [Suspect]
     Active Substance: SPIRONOLACTONE
     Indication: INFLAMMATION
     Dosage: 50 MG, UNK
  10. IBUPROFEN. [Suspect]
     Active Substance: IBUPROFEN
     Indication: INFLAMMATION
  11. FUROSEMIDE. [Suspect]
     Active Substance: FUROSEMIDE
     Indication: INFLAMMATION
     Dosage: 80 MG, UNK
  12. COLCHICINE. [Suspect]
     Active Substance: COLCHICINE
     Indication: DYSPNOEA
     Dosage: 1 MG, DAILY

REACTIONS (7)
  - Cardiac tamponade [Unknown]
  - Pericarditis constrictive [Unknown]
  - Affective disorder [Unknown]
  - Condition aggravated [Unknown]
  - Muscular weakness [Unknown]
  - Dyspnoea [Unknown]
  - Cushing^s syndrome [Unknown]
